FAERS Safety Report 8281035 (Version 3)
Quarter: 2018Q1

REPORT INFORMATION
  Report Type: Report from Study
  Country: FR (occurrence: FR)
  Receive Date: 20111208
  Receipt Date: 20180116
  Transmission Date: 20180509
  Serious: Yes (Hospitalization)
  Sender: FDA-Public Use
  Company Number: FR-ROCHE-1019194

PATIENT
  Age: 36 Year
  Sex: Female
  Weight: 63 kg

DRUGS (5)
  1. DOCETAXEL. [Suspect]
     Active Substance: DOCETAXEL
     Indication: HER-2 POSITIVE BREAST CANCER
     Dosage: DATE OF LAST DOSE PRIOR TO SAE : 07/NOV/2011
     Route: 042
     Dates: start: 20110926, end: 20111128
  2. BEVACIZUMAB. [Suspect]
     Active Substance: BEVACIZUMAB
     Indication: HER-2 POSITIVE BREAST CANCER
     Dosage: DATE OF LAST DOSE PRIOR TO SAE: 07/NOV/2011
     Route: 042
     Dates: start: 20111107, end: 20111128
  3. TRASTUZUMAB. [Suspect]
     Active Substance: TRASTUZUMAB
     Indication: HER-2 POSITIVE BREAST CANCER
     Dosage: DATE OF LAST DOSE PRIOR TO SAE: 07/NOV/2011
     Route: 042
     Dates: start: 20110926, end: 20111128
  4. TRASTUZUMAB. [Suspect]
     Active Substance: TRASTUZUMAB
     Route: 042
     Dates: start: 20111130
  5. DOCETAXEL. [Suspect]
     Active Substance: DOCETAXEL
     Route: 042
     Dates: start: 20111130

REACTIONS (1)
  - Encephalopathy [Recovered/Resolved]

NARRATIVE: CASE EVENT DATE: 20111128
